FAERS Safety Report 9586858 (Version 4)
Quarter: 2014Q1

REPORT INFORMATION
  Report Type: Report from Study
  Country: US (occurrence: US)
  Receive Date: 20131003
  Receipt Date: 20140327
  Transmission Date: 20141002
  Serious: Yes (Hospitalization, Other)
  Sender: FDA-Public Use
  Company Number: US-US-EMD SERONO, INC.-7240405

PATIENT
  Age: 50 Year
  Sex: Female

DRUGS (1)
  1. REBIF [Suspect]
     Indication: MULTIPLE SCLEROSIS
     Route: 058
     Dates: start: 20130327

REACTIONS (4)
  - Fungal infection [Recovered/Resolved]
  - Arthropod bite [Unknown]
  - Staphylococcal infection [Unknown]
  - Vitamin B12 decreased [Unknown]
